FAERS Safety Report 5381528-7 (Version None)
Quarter: 2007Q3

REPORT INFORMATION
  Report Type: 
  Country: None (occurrence: None)
  Receive Date: 20070703
  Receipt Date: 20070703
  Transmission Date: 20080115
  Serious: Yes (Other)
  Sender: FDA-Public Use
  Company Number: None

PATIENT
  Age: 65 Year
  Sex: Female

DRUGS (1)
  1. XANAX [Suspect]
     Indication: ANXIETY
     Dosage: 3 TIMES A DAY
     Dates: start: 20070201

REACTIONS (5)
  - HEADACHE [None]
  - NAUSEA [None]
  - NIGHTMARE [None]
  - STOMACH DISCOMFORT [None]
  - TREMOR [None]
